FAERS Safety Report 7888367-3 (Version None)
Quarter: 2011Q4

REPORT INFORMATION
  Report Type: 
  Country: None (occurrence: None)
  Receive Date: 20111103
  Receipt Date: 20111031
  Transmission Date: 20120403
  Serious: Yes (Other)
  Sender: FDA-Public Use
  Company Number: US-PFIZER INC-2011267156

PATIENT

DRUGS (1)
  1. DEPO-MEDROL [Suspect]
     Dosage: UNK

REACTIONS (3)
  - INJECTION SITE REACTION [None]
  - SURGERY [None]
  - DRUG INEFFECTIVE [None]
